FAERS Safety Report 10239488 (Version 2)
Quarter: 2014Q2

REPORT INFORMATION
  Report Type: Spontaneous
  Country: US (occurrence: US)
  Receive Date: 20140616
  Receipt Date: 20140616
  Transmission Date: 20141212
  Serious: Yes (Other)
  Sender: FDA-Public Use
  Company Number: US-ASTELLAS-2014US004853

PATIENT
  Age: 68 Year
  Sex: Female

DRUGS (5)
  1. MYRBETRIQ [Suspect]
     Indication: INCONTINENCE
     Route: 048
     Dates: start: 20131226, end: 201404
  2. IMODIUM [Suspect]
     Indication: DIARRHOEA
     Dosage: UNK, UNKNOWN FREQ.
     Route: 065
     Dates: start: 201404
  3. METFORMIN [Concomitant]
     Indication: TYPE 2 DIABETES MELLITUS
     Route: 065
  4. METFORMIN [Concomitant]
     Route: 065
     Dates: start: 201402
  5. METFORMIN [Concomitant]
     Route: 065

REACTIONS (15)
  - Haematochezia [Recovered/Resolved]
  - Mucous stools [Recovered/Resolved]
  - Blood glucose increased [Recovered/Resolved]
  - Vertigo [Recovered/Resolved]
  - Urinary tract infection [Unknown]
  - Sinusitis [Recovered/Resolved]
  - Dizziness [Unknown]
  - Diarrhoea [Unknown]
  - Fall [Unknown]
  - Burning sensation [Recovered/Resolved]
  - Contusion [Recovered/Resolved]
  - Traumatic haematoma [Recovered/Resolved]
  - Abdominal pain upper [Recovered/Resolved]
  - Intentional product misuse [Unknown]
  - Drug ineffective [Unknown]
